FAERS Safety Report 6591355-0 (Version None)
Quarter: 2010Q1

REPORT INFORMATION
  Report Type: 
  Country: None (occurrence: None)
  Receive Date: 20100219
  Receipt Date: 20100209
  Transmission Date: 20100710
  Serious: Yes (Hospitalization)
  Sender: FDA-Public Use
  Company Number: US-ABBOTT-09P-163-0607480-00

PATIENT
  Sex: Male

DRUGS (11)
  1. ABT-874 [Suspect]
     Indication: PSORIASIS
     Route: 058
     Dates: start: 20081215
  2. TRILIPIX [Suspect]
     Indication: BLOOD CHOLESTEROL INCREASED
     Dates: start: 20090811, end: 20091117
  3. VERAPAMIL [Concomitant]
     Indication: HYPERTENSION
     Dates: start: 19760101, end: 20091008
  4. ENALAPRIL MALEATE [Concomitant]
     Indication: HYPERTENSION
     Dates: start: 19760101
  5. NORVASC [Concomitant]
     Indication: HYPERTENSION
     Dates: start: 20000101
  6. ADVAIR DISKUS 100/50 [Concomitant]
     Indication: ASTHMA
     Route: 055
     Dates: start: 20000101
  7. HYDROCHLOROTHIAZIDE [Concomitant]
     Indication: HYPERTENSION
     Dates: start: 20070101
  8. VYTORIN [Suspect]
     Indication: BLOOD CHOLESTEROL INCREASED
     Dosage: 10/40
     Dates: start: 20060101
  9. MOBIC [Concomitant]
     Indication: ARTHRALGIA
     Dates: start: 20090305
  10. MOBIC [Concomitant]
     Indication: ANTIINFLAMMATORY THERAPY
  11. AVELOX [Concomitant]
     Indication: LUNG INFECTION
     Dates: start: 20091102, end: 20091105

REACTIONS (3)
  - CHOLECYSTITIS [None]
  - CHOLELITHIASIS [None]
  - PANCREATITIS [None]
